FAERS Safety Report 5025141-X (Version None)
Quarter: 2006Q2

REPORT INFORMATION
  Report Type: 
  Country: None (occurrence: None)
  Receive Date: 20060426
  Receipt Date: 20060123
  Transmission Date: 20061013
  Serious: Yes (Other)
  Sender: FDA-Public Use
  Company Number: 2006013761

PATIENT
  Age: 66 Year
  Sex: Male

DRUGS (4)
  1. LYRICA [Suspect]
     Indication: ILL-DEFINED DISORDER
  2. CELLCEPT [Suspect]
     Indication: ILL-DEFINED DISORDER
  3. CYCLOSPORINE [Suspect]
     Indication: ILL-DEFINED DISORDER
  4. IMMUNOSUPPRESSIVE AGENTS (IMMUNOSUPPRESSIVE AGENTS) [Suspect]
     Indication: ILL-DEFINED DISORDER

REACTIONS (1)
  - DRUG INTERACTION [None]
